FAERS Safety Report 6436619-6 (Version None)
Quarter: 2009Q4

REPORT INFORMATION
  Report Type: 
  Country: None (occurrence: None)
  Receive Date: 20091111
  Receipt Date: 20091030
  Transmission Date: 20100525
  Serious: Yes (Hospitalization)
  Sender: FDA-Public Use
  Company Number: CA-ELI_LILLY_AND_COMPANY-CA200911000256

PATIENT
  Age: 93 Year
  Sex: Female

DRUGS (12)
  1. FORTEO [Suspect]
     Indication: OSTEOPOROSIS
     Dosage: 20 UG, DAILY (1/D)
     Route: 058
     Dates: start: 20080825, end: 20090901
  2. PREDNISONE [Concomitant]
  3. DIAMICRON [Concomitant]
     Dosage: 60 MG, DAILY (1/D)
  4. AVAPRO [Concomitant]
     Dosage: 300 MG, DAILY (1/D)
  5. ATENOLOL [Concomitant]
     Dosage: 75 MG, DAILY (1/D)
  6. PLAVIX [Concomitant]
     Dosage: 75 MG, DAILY (1/D)
  7. ASPIRIN [Concomitant]
     Dosage: 325 MG, DAILY (1/D)
  8. HYDROCHLOROTHIAZIDE [Concomitant]
     Dosage: 12.5 MG, DAILY (1/D)
  9. PANTOLOC                           /01263201/ [Concomitant]
     Dosage: 40 MG, DAILY (1/D)
  10. EZETROL [Concomitant]
     Dosage: 10 MG, DAILY (1/D)
  11. CALCIUM [Concomitant]
  12. VITAMIN D [Concomitant]

REACTIONS (5)
  - APHASIA [None]
  - BLOOD CULTURE POSITIVE [None]
  - CHILLS [None]
  - DIARRHOEA [None]
  - PYREXIA [None]
